FAERS Safety Report 7261635-4 (Version None)
Quarter: 2011Q1

REPORT INFORMATION
  Report Type: 
  Country: None (occurrence: None)
  Receive Date: 20110124
  Receipt Date: 20110124
  Transmission Date: 20110831
  Serious: Yes (Hospitalization, Disabling, Other)
  Sender: FDA-Public Use
  Company Number: None

PATIENT
  Age: 21 Year
  Sex: Male
  Weight: 65.7716 kg

DRUGS (3)
  1. ALCOHOL SWABSTICKS [Concomitant]
  2. ALCOHOL SWABS [Concomitant]
  3. TRIAD ALCOHOL PREP PADS N/A TRIAD [Suspect]

REACTIONS (4)
  - NAUSEA [None]
  - DIABETIC COMPLICATION [None]
  - VOMITING [None]
  - DIARRHOEA [None]
